FAERS Safety Report 15324621 (Version 2)
Quarter: 2018Q3

REPORT INFORMATION
  Report Type: Spontaneous
  Country: US (occurrence: US)
  Receive Date: 20180828
  Receipt Date: 20180928
  Transmission Date: 20181010
  Serious: No
  Sender: FDA-Public Use
  Company Number: US-PFIZER INC-2018342325

PATIENT
  Age: 61 Year
  Sex: Female

DRUGS (4)
  1. LYRICA [Suspect]
     Active Substance: PREGABALIN
     Dosage: 75 MG, 2X/DAY (TAKE THE PRODUCT ONLY IN THE MORNING AND IN THE EVENING)
     Route: 048
     Dates: start: 2018, end: 20180821
  2. LYRICA [Suspect]
     Active Substance: PREGABALIN
     Dosage: 75 MG, UNK
     Dates: start: 201807
  3. LYRICA [Suspect]
     Active Substance: PREGABALIN
     Dosage: 75 MG, UNK
  4. LYRICA [Suspect]
     Active Substance: PREGABALIN
     Indication: FIBROMYALGIA
     Dosage: 75 MG, 3X/DAY
     Route: 048
     Dates: start: 201806, end: 2018

REACTIONS (9)
  - Drug ineffective [Unknown]
  - Vomiting [Unknown]
  - Product quality issue [Unknown]
  - Abdominal pain upper [Unknown]
  - Poor quality drug administered [Unknown]
  - Product use issue [Unknown]
  - Abdominal distension [Unknown]
  - Intentional product misuse [Unknown]
  - Chest pain [Unknown]

NARRATIVE: CASE EVENT DATE: 2018
